FAERS Safety Report 6129408-3 (Version None)
Quarter: 2009Q1

REPORT INFORMATION
  Report Type: 
  Country: None (occurrence: None)
  Receive Date: 20090323
  Receipt Date: 20090323
  Transmission Date: 20090719
  Serious: No
  Sender: FDA-Public Use
  Company Number: None

PATIENT
  Age: 52 Year
  Sex: Male
  Weight: 83.9154 kg

DRUGS (1)
  1. MELOXICAM [Suspect]
     Indication: TENDONITIS
     Dosage: 1 OR 2 TABLETS DAILY PO
     Route: 048
     Dates: start: 20090115, end: 20090301

REACTIONS (4)
  - DRY SKIN [None]
  - MIDDLE INSOMNIA [None]
  - PRURITUS [None]
  - URTICARIA [None]
